FAERS Safety Report 15189511 (Version 2)
Quarter: 2018Q3

REPORT INFORMATION
  Report Type: Spontaneous
  Country: GB (occurrence: GB)
  Receive Date: 20180724
  Receipt Date: 20180803
  Transmission Date: 20181010
  Serious: No
  Sender: FDA-Public Use
  Company Number: GB-PFIZER INC-2018293030

PATIENT
  Age: 59 Year
  Sex: Female

DRUGS (1)
  1. CHAMPIX [Suspect]
     Active Substance: VARENICLINE TARTRATE
     Indication: SMOKING CESSATION THERAPY
     Dosage: 1 MG, 2X/DAY
     Route: 048
     Dates: start: 20180701, end: 20180712

REACTIONS (2)
  - Somnolence [Recovered/Resolved with Sequelae]
  - Tearfulness [Recovered/Resolved with Sequelae]

NARRATIVE: CASE EVENT DATE: 20180706
